FAERS Safety Report 7827836-9 (Version None)
Quarter: 2011Q4

REPORT INFORMATION
  Report Type: 
  Country: None (occurrence: None)
  Receive Date: 20111020
  Receipt Date: 20111007
  Transmission Date: 20120403
  Serious: Yes (Hospitalization, Other)
  Sender: FDA-Public Use
  Company Number: IT-ELI_LILLY_AND_COMPANY-IT201110000131

PATIENT
  Sex: Female

DRUGS (7)
  1. FORTEO [Suspect]
     Indication: OSTEOPOROSIS
     Dosage: UNK
     Route: 058
     Dates: start: 20100101, end: 20110916
  2. ALPRAZOLAM [Concomitant]
  3. PREDNISONE [Concomitant]
  4. TACHIDOL [Concomitant]
     Indication: PAIN
     Dosage: UNK
     Dates: start: 20100101, end: 20110916
  5. HUMALOG [Concomitant]
  6. CORTISONE ACETATE [Concomitant]
  7. RABEPRAZOLE SODIUM [Concomitant]

REACTIONS (2)
  - HEPATITIS CHOLESTATIC [None]
  - HEPATIC FAILURE [None]
